FAERS Safety Report 8532690-6 (Version None)
Quarter: 2012Q3

REPORT INFORMATION
  Report Type: 
  Country: None (occurrence: None)
  Receive Date: 20120724
  Receipt Date: 20120717
  Transmission Date: 20120928
  Serious: Yes (Other)
  Sender: FDA-Public Use
  Company Number: PHHY2012MX062905

PATIENT
  Age: 65 Year
  Sex: Female

DRUGS (3)
  1. ARCOXIA [Concomitant]
     Dosage: UNK UKN, UNK
  2. ZOLEDRONOC ACID [Suspect]
     Indication: OSTEOPOROSIS
     Dosage: 5 MG/100 ML/YEAR
     Route: 042
     Dates: start: 20100901
  3. CALCIUM [Concomitant]
     Dosage: UNK UKN, ONCE/SINGLE
     Dates: start: 20100701

REACTIONS (7)
  - VISUAL IMPAIRMENT [None]
  - EMBOLIC STROKE [None]
  - MUSCULOSKELETAL DISORDER [None]
  - HEARING IMPAIRED [None]
  - SENSORY LOSS [None]
  - ARTHRALGIA [None]
  - ABDOMINAL PAIN UPPER [None]
